FAERS Safety Report 5234708-5 (Version None)
Quarter: 2007Q1

REPORT INFORMATION
  Report Type: 
  Country: None (occurrence: None)
  Receive Date: 20070209
  Receipt Date: 20070130
  Transmission Date: 20070707
  Serious: Yes (Hospitalization)
  Sender: FDA-Public Use
  Company Number: CA-ABBOTT-07P-028-0358036-00

PATIENT
  Sex: Male

DRUGS (2)
  1. KALETRA [Suspect]
     Indication: HIV INFECTION
     Route: 048
     Dates: start: 20061108
  2. KIVEXA [Concomitant]
     Indication: HIV INFECTION
     Dosage: 600MG/300MG DAILY
     Route: 048

REACTIONS (3)
  - AGGRESSION [None]
  - DELIRIUM [None]
  - FALL [None]
